FAERS Safety Report 5671605-5 (Version None)
Quarter: 2008Q1

REPORT INFORMATION
  Report Type: 
  Country: None (occurrence: None)
  Receive Date: 20080313
  Receipt Date: 20080227
  Transmission Date: 20080703
  Serious: Yes (Other)
  Sender: FDA-Public Use
  Company Number: ENT 2008-0028

PATIENT
  Sex: Female

DRUGS (4)
  1. COMTAN [Suspect]
     Indication: PARKINSON'S DISEASE
     Dosage: 400 MG
     Route: 048
  2. LEVODOPA BENSERAZIDE [Concomitant]
  3. HYDROCHLORIDE [Concomitant]
  4. SYMMETREL [Concomitant]

REACTIONS (2)
  - HALLUCINATION [None]
  - MULTIPLE DRUG OVERDOSE [None]
